FAERS Safety Report 8119387-1 (Version None)
Quarter: 2012Q1

REPORT INFORMATION
  Report Type: 
  Country: None (occurrence: None)
  Receive Date: 20120207
  Receipt Date: 20120127
  Transmission Date: 20120608
  Serious: Yes (Death, Other)
  Sender: FDA-Public Use
  Company Number: FR-TEVA-320957ISR

PATIENT

DRUGS (1)
  1. ACTIQ [Suspect]

REACTIONS (3)
  - DEATH [None]
  - OVERDOSE [None]
  - TOOTH INJURY [None]
